FAERS Safety Report 13918441 (Version 1)
Quarter: 2017Q3

REPORT INFORMATION
  Report Type: Spontaneous
  Country: US (occurrence: US)
  Receive Date: 20170829
  Receipt Date: 20170829
  Transmission Date: 20171127
  Serious: Yes (Death, Life-Threatening, Hospitalization, Other)
  Sender: FDA-Public Use
  Company Number: US-PFIZER INC-2017368048

PATIENT
  Age: 41 Year
  Sex: Male

DRUGS (2)
  1. PROPOFOL. [Suspect]
     Active Substance: PROPOFOL
     Indication: SEDATION
     Dosage: UNK
  2. CISATRACURIUM. [Concomitant]
     Active Substance: CISATRACURIUM

REACTIONS (5)
  - Pulse absent [Fatal]
  - Bradycardia [Fatal]
  - Hyperkalaemia [Recovered/Resolved]
  - Propofol infusion syndrome [Fatal]
  - Tachycardia [Unknown]
